FAERS Safety Report 4398459-1 (Version None)
Quarter: 2004Q3

REPORT INFORMATION
  Report Type: 
  Country: None (occurrence: None)
  Receive Date: 20040715
  Receipt Date: 20040706
  Transmission Date: 20050211
  Serious: Yes (Death)
  Sender: FDA-Public Use
  Company Number: PL-ROCHE-373472

PATIENT
  Age: 20 Year
  Sex: Male

DRUGS (4)
  1. ROACCUTANE [Suspect]
     Indication: ACNE
     Route: 048
     Dates: start: 20021220
  2. ROACCUTANE [Suspect]
     Route: 048
  3. ROACCUTANE [Suspect]
     Route: 048
  4. ROACCUTANE [Suspect]
     Route: 048
     Dates: end: 20030716

REACTIONS (1)
  - COMPLETED SUICIDE [None]
